FAERS Safety Report 8675234 (Version 3)
Quarter: 2012Q4

REPORT INFORMATION
  Report Type: 
  Country: US (occurrence: US)
  Receive Date: 20120720
  Receipt Date: 20120904
  Transmission Date: 20130627
  Serious: Yes (Death, Other)
  Sender: FDA-Public Use
  Company Number: US-PFIZER INC-2012174052

PATIENT
  Age: 15 Year
  Sex: Female
  Weight: 67.12 kg

DRUGS (2)
  1. TIKOSYN [Suspect]
     Indication: SUPRAVENTRICULAR TACHYCARDIA
     Dosage: 500 UNK, 2x/day
     Dates: start: 201112, end: 20120624
  2. BABY ASPIRIN [Concomitant]
     Dosage: UNK

REACTIONS (4)
  - Cardiac failure [Fatal]
  - Feeling hot [Unknown]
  - Hyperhidrosis [Unknown]
  - Abdominal pain upper [Unknown]
